FAERS Safety Report 6519431-9 (Version None)
Quarter: 2009Q4

REPORT INFORMATION
  Report Type: 
  Country: None (occurrence: None)
  Receive Date: 20091228
  Receipt Date: 20091210
  Transmission Date: 20100525
  Serious: Yes (Other)
  Sender: FDA-Public Use
  Company Number: IE-BAYER-200937140GPV

PATIENT
  Sex: Male
  Weight: 1.95 kg

DRUGS (1)
  1. MIRENA [Suspect]

REACTIONS (1)
  - FOETAL GROWTH RETARDATION [None]
